FAERS Safety Report 24965910 (Version 1)
Quarter: 2025Q1

REPORT INFORMATION
  Report Type: Spontaneous
  Country: US (occurrence: None)
  Receive Date: 20250212
  Receipt Date: 20250212
  Transmission Date: 20250409
  Serious: No
  Sender: FDA-CTU
  Company Number: None

PATIENT
  Age: 89 Year
  Sex: Male
  Weight: 67 kg

DRUGS (1)
  1. METOPROLOL SUCCINATE [Suspect]
     Active Substance: METOPROLOL SUCCINATE
     Dosage: FREQUENCY : DAILY;?
     Route: 048
     Dates: start: 20250103, end: 20250105

REACTIONS (6)
  - Bradycardia [None]
  - Hypotension [None]
  - Pneumonia [None]
  - Sepsis [None]
  - Escherichia bacteraemia [None]
  - Presyncope [None]

NARRATIVE: CASE EVENT DATE: 20250105
